FAERS Safety Report 9259319 (Version 1)
Quarter: 2013Q2

REPORT INFORMATION
  Report Type: Report from Study
  Country: US (occurrence: US)
  Receive Date: 20130427
  Receipt Date: 20130427
  Transmission Date: 20140414
  Serious: Yes (Death)
  Sender: FDA-Public Use
  Company Number: US-ROCHE-1144681

PATIENT
  Age: 72 Year
  Sex: Female

DRUGS (1)
  1. NUTROPIN [Suspect]
     Indication: HYPOPITUITARISM
     Route: 065

REACTIONS (2)
  - Memory impairment [Unknown]
  - Death [Fatal]
